FAERS Safety Report 7579008-3 (Version None)
Quarter: 2011Q2

REPORT INFORMATION
  Report Type: 
  Country: None (occurrence: None)
  Receive Date: 20110628
  Receipt Date: 20110616
  Transmission Date: 20111010
  Serious: Yes (Hospitalization)
  Sender: FDA-Public Use
  Company Number: PHHY2011NL53163

PATIENT
  Sex: Female

DRUGS (5)
  1. DEPO-PROVERA [Concomitant]
     Dosage: 1 ML, Q3MO
     Dates: start: 20090101
  2. OMEPRAZOLE [Suspect]
     Dosage: 40 MG, QD
  3. KEPPRA [Concomitant]
     Dosage: 250 MG, BID
     Dates: start: 20110426
  4. FRISIUM [Concomitant]
     Dosage: 5 MG, QD
     Dates: start: 20090101
  5. CARBAMAZEPINE [Interacting]
     Dosage: 1000 MG, UNK

REACTIONS (2)
  - TOXICITY TO VARIOUS AGENTS [None]
  - DRUG INTERACTION [None]
